FAERS Safety Report 6128267-2 (Version None)
Quarter: 2009Q1

REPORT INFORMATION
  Report Type: 
  Country: None (occurrence: None)
  Receive Date: 20090323
  Receipt Date: 20090313
  Transmission Date: 20090719
  Serious: Yes (Other)
  Sender: FDA-Public Use
  Company Number: US-ELI_LILLY_AND_COMPANY-US200903003668

PATIENT
  Age: 62 Year
  Sex: Male

DRUGS (2)
  1. ALIMTA [Suspect]
     Indication: ADENOCARCINOMA
     Dosage: 500 MG/M2, OTHER
  2. CARBOPLATIN [Concomitant]
     Indication: ADENOCARCINOMA
     Dosage: OTHER; AUC=6

REACTIONS (2)
  - BLOOD BILIRUBIN INCREASED [None]
  - ORAL CANDIDIASIS [None]
